FAERS Safety Report 13400155 (Version 2)
Quarter: 2017Q3

REPORT INFORMATION
  Report Type: Spontaneous
  Country: US (occurrence: US)
  Receive Date: 20170404
  Receipt Date: 20170926
  Transmission Date: 20171127
  Serious: No
  Sender: FDA-Public Use
  Company Number: US-PFIZER INC-2017142716

PATIENT
  Age: 65 Year
  Sex: Female

DRUGS (1)
  1. XELJANZ XR [Suspect]
     Active Substance: TOFACITINIB CITRATE
     Indication: RHEUMATOID ARTHRITIS
     Dosage: 11 MG

REACTIONS (6)
  - Genital discomfort [Unknown]
  - Tongue pruritus [Unknown]
  - Rash [Unknown]
  - Pruritus [Unknown]
  - Genital rash [Unknown]
  - Skin lesion [Unknown]

NARRATIVE: CASE EVENT DATE: 20170202
